FAERS Safety Report 16359549 (Version 1)
Quarter: 2019Q2

REPORT INFORMATION
  Report Type: Report from Study
  Country: KR (occurrence: KR)
  Receive Date: 20190528
  Receipt Date: 20190528
  Transmission Date: 20190711
  Serious: Yes (Other)
  Sender: FDA-Public Use
  Company Number: KR-B.I. PHARMACEUTICALS,INC./RIDGEFIELD-2019-BI-023937

PATIENT
  Age: 51 Year
  Sex: Male

DRUGS (19)
  1. BROMHEXINE HYDROCHLORIDE [Suspect]
     Active Substance: BROMHEXINE HYDROCHLORIDE
     Indication: ANTITUSSIVE THERAPY
     Route: 048
     Dates: start: 20180302
  2. BISOLVON [Suspect]
     Active Substance: BROMHEXINE HYDROCHLORIDE
     Indication: PNEUMONIA
     Dosage: SOLUBLE TABLET
     Route: 065
     Dates: start: 20180118
  3. METFORMIN HYDROCHLORIDE. [Suspect]
     Active Substance: METFORMIN HYDROCHLORIDE
     Indication: PRODUCT USED FOR UNKNOWN INDICATION
     Route: 048
     Dates: start: 20180109
  4. RANITIDINE HYDROCHLORIDE. [Suspect]
     Active Substance: RANITIDINE HYDROCHLORIDE
     Indication: PRODUCT USED FOR UNKNOWN INDICATION
     Route: 048
     Dates: start: 20180109
  5. ZENTALAMIN [Suspect]
     Active Substance: AMINO ACIDS
     Indication: PNEUMONIA
     Dosage: 10%
     Route: 065
     Dates: start: 20180118
  6. GLIATILIN [Suspect]
     Active Substance: CHOLINE ALFOSCERATE
     Indication: PRODUCT USED FOR UNKNOWN INDICATION
     Route: 048
     Dates: start: 20180109
  7. MUCOSOLVAN [Suspect]
     Active Substance: AMBROXOL HYDROCHLORIDE
     Indication: PNEUMONIA
     Dosage: 7.5 MG/ML, FORMULATION-SOLUTION FOR INJECTION.
     Route: 065
     Dates: start: 20180118
  8. PARACETAMOL [Suspect]
     Active Substance: ACETAMINOPHEN
     Route: 065
     Dates: start: 20180118
  9. PARACETAMOL [Suspect]
     Active Substance: ACETAMINOPHEN
     Route: 048
  10. L-CARBOCYSTEINE [Suspect]
     Active Substance: CARBOCYSTEINE
     Indication: ANTITUSSIVE THERAPY
     Route: 048
     Dates: start: 20180302
  11. PARACETAMOL [Suspect]
     Active Substance: ACETAMINOPHEN
     Dosage: ER
     Route: 065
  12. MUCOSTA [Suspect]
     Active Substance: REBAMIPIDE
     Indication: PRODUCT USED FOR UNKNOWN INDICATION
     Route: 048
     Dates: start: 20180109
  13. TWYNSTA [Suspect]
     Active Substance: AMLODIPINE BESYLATE\TELMISARTAN
     Indication: PRODUCT USED FOR UNKNOWN INDICATION
     Dosage: 80/5 MG, (AMLODIPINE BESYLATE 6.935 MG, TELMISARTAN 80MG)
     Route: 048
     Dates: start: 20180109
  14. ACETYLSALICYLIC ACID [Suspect]
     Active Substance: ASPIRIN
     Indication: PRODUCT USED FOR UNKNOWN INDICATION
     Dosage: ASPIRIN ENTERIC 120.98 MG
     Route: 048
     Dates: start: 20180109
  15. PARACETAMOL [Suspect]
     Active Substance: ACETAMINOPHEN
     Indication: PNEUMONIA
     Route: 048
     Dates: start: 20180302
  16. RHINATHIOL [CARBOCYSTEINE] [Suspect]
     Active Substance: CARBOCYSTEINE
     Indication: PNEUMONIA
     Route: 065
     Dates: start: 20180118
  17. JANUVIA [Suspect]
     Active Substance: SITAGLIPTIN PHOSPHATE
     Indication: PRODUCT USED FOR UNKNOWN INDICATION
     Route: 048
     Dates: start: 20180109
  18. CEFTRIAXONE SODIUM HYDRATE [Suspect]
     Active Substance: CEFTRIAXONE SODIUM
     Indication: PNEUMONIA
     Route: 065
     Dates: start: 20180118
  19. PANCOLD S [Suspect]
     Active Substance: ACETAMINOPHEN\CAFFEINE\CHLORPHENIRAMINE\GUAIFENESIN\METHYLEPHEDRINE HYDROCHLORIDE, DL-
     Indication: PRODUCT USED FOR UNKNOWN INDICATION
     Route: 048
     Dates: start: 2018

REACTIONS (2)
  - Hepatic function abnormal [Recovered/Resolved]
  - Self-medication [Recovered/Resolved]

NARRATIVE: CASE EVENT DATE: 20180303
